FAERS Safety Report 4557098-X (Version None)
Quarter: 2005Q1

REPORT INFORMATION
  Report Type: 
  Country: None (occurrence: None)
  Receive Date: 20050118
  Receipt Date: 20050104
  Transmission Date: 20050727
  Serious: Yes (Hospitalization)
  Sender: FDA-Public Use
  Company Number: 200410568BFR

PATIENT
  Age: 39 Year
  Sex: Male
  Weight: 72 kg

DRUGS (11)
  1. MOXIFLOXACIN HYDROCHLORIDE [Suspect]
     Indication: PULMONARY TUBERCULOSIS
     Dosage: 400 MG, TOTAL DAILY, ORAL
     Route: 048
     Dates: start: 20040305, end: 20040820
  2. CIPROFLOXACIN HCL [Suspect]
     Indication: PULMONARY TUBERCULOSIS
     Dosage: 1000 MG, TOTAL DAILY
     Dates: start: 20031110, end: 20040201
  3. RIMIFON [Concomitant]
  4. ETHAMBUTOL HCL [Concomitant]
  5. RIFINAH [Concomitant]
  6. RIFAMPICINE [Concomitant]
  7. COMBIVIR [Concomitant]
  8. SUSTIVA [Concomitant]
  9. BACTRIM [Concomitant]
  10. VITAMIN B1 AND B6 [Concomitant]
  11. CLONAZEPAM [Concomitant]

REACTIONS (9)
  - ALANINE AMINOTRANSFERASE INCREASED [None]
  - AREFLEXIA [None]
  - ASPARTATE AMINOTRANSFERASE INCREASED [None]
  - BLOOD ALKALINE PHOSPHATASE INCREASED [None]
  - BLOOD CREATINE PHOSPHOKINASE INCREASED [None]
  - CONDITION AGGRAVATED [None]
  - DRUG INEFFECTIVE [None]
  - GAMMA-GLUTAMYLTRANSFERASE INCREASED [None]
  - NEUROPATHY PERIPHERAL [None]
